FAERS Safety Report 9034693 (Version 2)
Quarter: 2013Q1

REPORT INFORMATION
  Report Type: Spontaneous
  Country: FR (occurrence: FR)
  Receive Date: 20130128
  Receipt Date: 20130130
  Transmission Date: 20140127
  Serious: Yes (Other)
  Sender: FDA-Public Use
  Company Number: FR-VIIV HEALTHCARE LIMITED-B0858751A

PATIENT
  Sex: Female

DRUGS (2)
  1. COMBIVIR [Suspect]
     Indication: HIV INFECTION
     Route: 065
     Dates: start: 20081125
  2. LOPINAVIR [Suspect]
     Indication: HIV INFECTION
     Route: 065
     Dates: start: 20081125

REACTIONS (7)
  - Stillbirth [Unknown]
  - Premature rupture of membranes [Unknown]
  - Threatened labour [Unknown]
  - Amniotic cavity infection [Unknown]
  - Twin pregnancy [Unknown]
  - Premature delivery [Unknown]
  - Exposure during pregnancy [Unknown]
